FAERS Safety Report 9556446 (Version 1)
Quarter: 2013Q3

REPORT INFORMATION
  Report Type: Spontaneous
  Country: US (occurrence: None)
  Receive Date: 20130819
  Receipt Date: 20130819
  Transmission Date: 20140515
  Serious: Yes (Other)
  Sender: FDA-Public Use
  Company Number: 13US007241

PATIENT
  Age: 15 Year
  Sex: Female
  Weight: 54.4 kg

DRUGS (1)
  1. PEXEVA [Suspect]
     Indication: OBSESSIVE-COMPULSIVE PERSONALITY DISORDER
     Dates: start: 201301, end: 201303

REACTIONS (10)
  - Convulsion [None]
  - Tibia fracture [None]
  - Myoclonus [None]
  - Headache [None]
  - Dizziness [None]
  - Photophobia [None]
  - Insomnia [None]
  - Influenza [None]
  - Off label use [None]
  - Drug prescribing error [None]
